FAERS Safety Report 7764227-3 (Version None)
Quarter: 2011Q3

REPORT INFORMATION
  Report Type: 
  Country: None (occurrence: None)
  Receive Date: 20110921
  Receipt Date: 20110919
  Transmission Date: 20111222
  Serious: Yes (Death, Hospitalization)
  Sender: FDA-Public Use
  Company Number: FR-BAYER-2011-019692

PATIENT
  Age: 64 Year
  Sex: Male

DRUGS (17)
  1. SORAFENIB (RAF KINASE INHIBITOR) [Suspect]
     Dosage: 0 MG
     Route: 048
     Dates: start: 20110228, end: 20110310
  2. FUROSEMIDE [Concomitant]
     Indication: HYPERTENSION
     Dosage: DAILY DOSE 40 MG
     Dates: start: 20000101, end: 20110228
  3. ACETAMINOPHEN [Concomitant]
     Indication: HEADACHE
     Dosage: 4-6 TABLETS AS NEEDES
     Dates: start: 20110203, end: 20110228
  4. PLACEBO [Suspect]
     Dosage: 0 MG, SUBJECT ERROR
     Route: 048
     Dates: start: 20110202, end: 20110202
  5. SORAFENIB (RAF KINASE INHIBITOR) [Suspect]
     Dosage: 400 MG, BID
     Route: 048
     Dates: start: 20110203, end: 20110206
  6. ACETAMINOPHEN [Concomitant]
     Indication: PAIN
  7. PLACEBO [Suspect]
     Dosage: 0 MG
     Route: 048
     Dates: start: 20110228, end: 20110310
  8. CANDESARTAN CILEXETIL AND HYDROCHLOROTHIAZIDE [Concomitant]
     Indication: HYPERTENSION
     Dosage: DAILY DOSE 16 MG
     Dates: start: 20000101, end: 20110228
  9. PLACEBO [Suspect]
     Dosage: 150 MG, QD
     Route: 048
     Dates: start: 20110203, end: 20110206
  10. PLACEBO [Suspect]
     Dosage: 150 MG, QD
     Route: 048
     Dates: start: 20110207, end: 20110227
  11. SORAFENIB (RAF KINASE INHIBITOR) [Suspect]
     Indication: HEPATIC NEOPLASM MALIGNANT
     Dosage: 200 MG, QD
     Route: 048
     Dates: start: 20110118, end: 20110201
  12. SORAFENIB (RAF KINASE INHIBITOR) [Suspect]
     Dosage: 0 MG, SUBJECT ERROR
     Route: 048
     Dates: start: 20110202, end: 20110202
  13. DIAMICRON [Concomitant]
     Indication: DIABETES MELLITUS
     Dosage: DAILY DOSE 60 MG
     Dates: start: 20101120, end: 20110310
  14. SORAFENIB (RAF KINASE INHIBITOR) [Suspect]
     Dosage: 400 MG, BID
     Route: 048
     Dates: start: 20110207, end: 20110227
  15. PLACEBO [Suspect]
     Indication: HEPATIC NEOPLASM MALIGNANT
     Dosage: 600 MG, QD
     Route: 048
     Dates: start: 20110118, end: 20110201
  16. BISOPROLOL FUMARATE [Concomitant]
     Indication: HYPERTENSION
     Dosage: DAILY DOSE 5 MG
     Dates: start: 20110203, end: 20110228
  17. ZOPICLONE [Concomitant]
     Indication: INSOMNIA
     Dosage: 1 DF, QD
     Dates: start: 20110203, end: 20110228

REACTIONS (2)
  - INTESTINAL FISTULA [None]
  - SEPSIS [None]
